FAERS Safety Report 6640417-8 (Version None)
Quarter: 2010Q1

REPORT INFORMATION
  Report Type: 
  Country: None (occurrence: None)
  Receive Date: 20100318
  Receipt Date: 20100303
  Transmission Date: 20100710
  Serious: Yes (Other)
  Sender: FDA-Public Use
  Company Number: CA-PFIZER INC-2010018934

PATIENT
  Age: 89 Year
  Sex: Male

DRUGS (11)
  1. DETROL LA [Suspect]
     Indication: HYPERTONIC BLADDER
     Dosage: 2 MG, 2X/DAY
     Route: 048
     Dates: start: 20080101
  2. TAMSULOSIN HYDROCHLORIDE [Concomitant]
     Dosage: 1 PER DAY
     Route: 048
  3. CALCIUM [Concomitant]
     Dosage: 500 MG, 1X/DAY
     Route: 048
  4. CUMADIN [Concomitant]
     Dosage: 5 MG, 1X/DAY
     Route: 048
  5. ALTACE [Concomitant]
     Dosage: 2.5 MG, 1X/DAY
     Route: 048
  6. ACETYLSALICYLIC ACID [Concomitant]
     Dosage: 80 MG, 1X/DAY
     Route: 048
  7. ZOCOR [Concomitant]
     Dosage: 5 MG, 1X/DAY
     Route: 048
  8. DITROPAN [Concomitant]
     Dosage: 2 PER DAY
     Route: 048
  9. ALDACTONE [Concomitant]
     Dosage: 50 MG, 1X/DAY
     Route: 048
  10. FOLIC ACID [Concomitant]
     Dosage: 5 MG, 1X/DAY
     Route: 048
  11. LASIX [Concomitant]
     Dosage: 20 MG, 1X/DAY
     Route: 048

REACTIONS (2)
  - POLLAKIURIA [None]
  - SURGERY [None]
